FAERS Safety Report 7222056-3 (Version None)
Quarter: 2011Q1

REPORT INFORMATION
  Report Type: 
  Country: None (occurrence: None)
  Receive Date: 20110103
  Receipt Date: 20101217
  Transmission Date: 20110831
  Serious: Yes (Hospitalization)
  Sender: FDA-Public Use
  Company Number: 021079

PATIENT
  Sex: Male
  Weight: 73 kg

DRUGS (1)
  1. CIMZIA [Suspect]
     Indication: CROHN'S DISEASE
     Dosage: 400 MG1X/4 WEEKS SUBCUTANEOUS
     Route: 058
     Dates: start: 20100317, end: 20100701

REACTIONS (4)
  - COLONIC OBSTRUCTION [None]
  - POSTOPERATIVE ABSCESS [None]
  - CONDITION AGGRAVATED [None]
  - CROHN'S DISEASE [None]
